FAERS Safety Report 24877759 (Version 2)
Quarter: 2025Q3

REPORT INFORMATION
  Report Type: Spontaneous
  Country: TR (occurrence: TR)
  Receive Date: 20250123
  Receipt Date: 20250729
  Transmission Date: 20251020
  Serious: Yes (Other)
  Sender: TEVA
  Company Number: TR-TEVA-VS-3288473

PATIENT
  Age: 13 Year
  Sex: Female

DRUGS (6)
  1. METHYLPHENIDATE [Suspect]
     Active Substance: METHYLPHENIDATE
     Indication: Epileptic encephalopathy
     Route: 065
  2. ARIPIPRAZOLE [Suspect]
     Active Substance: ARIPIPRAZOLE
     Indication: Epileptic encephalopathy
     Route: 065
  3. ARIPIPRAZOLE [Suspect]
     Active Substance: ARIPIPRAZOLE
     Indication: Epileptic encephalopathy
     Dosage: DECREASED DOSE
     Route: 065
  4. ARIPIPRAZOLE [Suspect]
     Active Substance: ARIPIPRAZOLE
     Indication: Epileptic encephalopathy
     Dosage: GRADUALLY TITRATED DOSE
     Route: 065
  5. ARIPIPRAZOLE [Suspect]
     Active Substance: ARIPIPRAZOLE
     Indication: Epileptic encephalopathy
     Route: 065
  6. CLONAZEPAM [Concomitant]
     Active Substance: CLONAZEPAM
     Indication: Epileptic encephalopathy
     Route: 065

REACTIONS (4)
  - Akathisia [Unknown]
  - Weight increased [Unknown]
  - Drug ineffective [Unknown]
  - Increased appetite [Unknown]
